FAERS Safety Report 5037636-3 (Version None)
Quarter: 2006Q2

REPORT INFORMATION
  Report Type: 
  Country: None (occurrence: None)
  Receive Date: 20060601
  Receipt Date: 20060208
  Transmission Date: 20061013
  Serious: No
  Sender: FDA-Public Use
  Company Number: 2006PV008435

PATIENT
  Age: 47 Year
  Sex: Male

DRUGS (6)
  1. BYETTA [Suspect]
     Indication: DIABETES MELLITUS NON-INSULIN-DEPENDENT
     Dosage: 5 MCG;BID;SC
     Route: 058
     Dates: start: 20060110, end: 20060116
  2. LANTUS [Concomitant]
  3. NOVOLIN [Concomitant]
  4. GLUCOPHAGE [Concomitant]
  5. ALTACE [Concomitant]
  6. GLYBURIDE [Concomitant]

REACTIONS (2)
  - HYPERMETROPIA [None]
  - VISION BLURRED [None]
